FAERS Safety Report 14943276 (Version 2)
Quarter: 2018Q2

REPORT INFORMATION
  Report Type: Spontaneous
  Country: US (occurrence: US)
  Receive Date: 20180528
  Receipt Date: 20180608
  Transmission Date: 20180711
  Serious: No
  Sender: FDA-Public Use
  Company Number: US-TEVA-2018-US-898670

PATIENT
  Age: 41 Year
  Sex: Female

DRUGS (1)
  1. ADIPEX-P [Suspect]
     Active Substance: PHENTERMINE HYDROCHLORIDE
     Indication: WEIGHT DECREASED
     Dates: start: 20180504

REACTIONS (4)
  - Product quality issue [Unknown]
  - Asthenia [Unknown]
  - Drug ineffective [Unknown]
  - Hunger [Unknown]

NARRATIVE: CASE EVENT DATE: 2018
